FAERS Safety Report 6613350-5 (Version None)
Quarter: 2010Q1

REPORT INFORMATION
  Report Type: 
  Country: None (occurrence: None)
  Receive Date: 20100304
  Receipt Date: 20100225
  Transmission Date: 20100710
  Serious: Yes (Death, Other)
  Sender: FDA-Public Use
  Company Number: PHHY2010BR11277

PATIENT
  Sex: Female

DRUGS (1)
  1. LEPONEX [Suspect]
     Dosage: 600 MG, QD
     Dates: start: 20090101

REACTIONS (2)
  - DEATH [None]
  - FULL BLOOD COUNT ABNORMAL [None]
